FAERS Safety Report 8215775-3 (Version None)
Quarter: 2012Q1

REPORT INFORMATION
  Report Type: 
  Country: None (occurrence: None)
  Receive Date: 20120316
  Receipt Date: 20120312
  Transmission Date: 20120608
  Serious: Yes (Death, Other)
  Sender: FDA-Public Use
  Company Number: US-ACTELION-A-NJ2012-62487

PATIENT

DRUGS (4)
  1. VENTAVIS [Suspect]
     Indication: PULMONARY ARTERIAL HYPERTENSION
     Dosage: UNK
     Route: 055
     Dates: start: 20120120, end: 20120101
  2. COUMADIN [Concomitant]
  3. OXYGEN [Concomitant]
  4. REVATIO [Concomitant]

REACTIONS (2)
  - TRANSPLANT [None]
  - DEATH [None]
